FAERS Safety Report 13355396 (Version 5)
Quarter: 2017Q2

REPORT INFORMATION
  Report Type: Spontaneous
  Country: FR (occurrence: FR)
  Receive Date: 20170321
  Receipt Date: 20170608
  Transmission Date: 20170830
  Serious: Yes (Other)
  Sender: FDA-Public Use
  Company Number: FR-PFIZER INC-2017112272

PATIENT
  Age: 54 Year
  Sex: Male
  Weight: 81 kg

DRUGS (39)
  1. HEPARIN SODIUM. [Suspect]
     Active Substance: HEPARIN SODIUM
     Dosage: 2000 IU, DAILY
     Route: 058
     Dates: start: 20170122, end: 20170131
  2. VENOFER [Suspect]
     Active Substance: IRON SUCROSE
     Dosage: 300 MG, ALTERNATE DAY
     Route: 042
     Dates: start: 20170201, end: 20170205
  3. ATORVASTATIN CALCIUM. [Suspect]
     Active Substance: ATORVASTATIN CALCIUM
     Dosage: 10 MG, DAILY
     Route: 048
     Dates: end: 20170112
  4. OMEPRAZOLE. [Suspect]
     Active Substance: OMEPRAZOLE
     Dosage: 40 MG, DAILY
     Route: 048
     Dates: end: 20170207
  5. PERINDOPRIL [Suspect]
     Active Substance: PERINDOPRIL
     Dosage: 8 MG, 1X/DAY
     Route: 048
  6. OFLOCET /00731801/ [Suspect]
     Active Substance: OFLOXACIN
     Dosage: 1 DF, 2X/DAY
     Route: 042
     Dates: start: 20170109, end: 20170111
  7. TRAMADOL HYDROCHLORIDE. [Suspect]
     Active Substance: TRAMADOL HYDROCHLORIDE
     Dosage: 400 MG, DAILY
     Route: 048
     Dates: start: 20170203
  8. MOVICOL [Suspect]
     Active Substance: POLYETHYLENE GLYCOL 3350\POTASSIUM CHLORIDE\SODIUM BICARBONATE\SODIUM CHLORIDE
     Dosage: UNK, AS NEEDED
     Route: 048
  9. ZOPHREN /00955302/ [Suspect]
     Active Substance: ONDANSETRON
     Dosage: 12 MG, DAILY(IF NEEDED)
     Route: 042
     Dates: start: 20170105
  10. LORMETAZEPAM [Suspect]
     Active Substance: LORMETAZEPAM
     Dosage: UNK
     Route: 048
  11. ACTISKENAN [Suspect]
     Active Substance: MORPHINE SULFATE
     Dosage: 10 MG, 4X/DAY (IF NEEDED)
     Route: 048
     Dates: start: 201702
  12. METFORMIN HCL [Suspect]
     Active Substance: METFORMIN HYDROCHLORIDE
     Dosage: 850 MG, 3X/DAY
     Route: 048
     Dates: start: 20170206
  13. LYRICA [Suspect]
     Active Substance: PREGABALIN
     Dosage: 150 MG, 3X/DAY
     Route: 048
     Dates: start: 20170207
  14. TARDYFERON [Suspect]
     Active Substance: FERROUS SULFATE
     Dosage: 80 MG, 2X/DAY
     Route: 048
     Dates: start: 201702, end: 20170304
  15. LEVOFLOXACIN. [Concomitant]
     Active Substance: LEVOFLOXACIN
     Dosage: 500 MG, 2X/DAY
     Route: 042
  16. TAVANIC [Suspect]
     Active Substance: LEVOFLOXACIN
     Dosage: UNK
     Route: 042
     Dates: start: 20170309
  17. ATARAX [Suspect]
     Active Substance: HYDROXYZINE HYDROCHLORIDE
     Dosage: 25 MG, 4X/DAY
     Route: 048
     Dates: start: 20170129, end: 20170207
  18. VERSATIS [Suspect]
     Active Substance: LIDOCAINE
     Dosage: UNK
     Route: 003
     Dates: end: 20170207
  19. HUMALOG [Suspect]
     Active Substance: INSULIN LISPRO
     Dosage: 4 IU, 3X/DAY
     Route: 058
  20. OXYCONTIN [Suspect]
     Active Substance: OXYCODONE HYDROCHLORIDE
     Dosage: 120 MG, 2X/DAY
     Route: 048
     Dates: start: 201702, end: 20170304
  21. FORTUM /00559701/ [Concomitant]
     Active Substance: CEFTAZIDIME
     Dosage: 2 G, 3X/DAY
     Route: 042
     Dates: start: 20170322
  22. CLOPIDOGREL [Suspect]
     Active Substance: CLOPIDOGREL BISULFATE
     Dosage: 75 MG, DAILY
     Route: 048
     Dates: end: 20161212
  23. TAVANIC [Suspect]
     Active Substance: LEVOFLOXACIN
     Dosage: 1 DF, 2X/DAY
     Route: 042
     Dates: start: 20170208, end: 20170304
  24. AUGMENTIN [Suspect]
     Active Substance: AMOXICILLIN\CLAVULANATE POTASSIUM
     Dosage: 1 G, 3X/DAY
     Route: 048
     Dates: start: 20170106, end: 20170109
  25. DIAMICRON [Suspect]
     Active Substance: GLICLAZIDE
     Dosage: 90 MG, DAILY
     Route: 048
     Dates: start: 20170207
  26. IMOVANE [Suspect]
     Active Substance: ZOPICLONE
     Dosage: 7.5 MG, DAILY
     Route: 048
     Dates: start: 201702
  27. LANSOYL [Suspect]
     Active Substance: MINERAL OIL
     Dosage: UNK, AS NEEDED
     Route: 048
  28. KARDEGIC [Suspect]
     Active Substance: ASPIRIN LYSINE
     Dosage: 75 MG, DAILY
     Route: 048
     Dates: start: 20161212, end: 20170218
  29. TAZOCILLINE [Suspect]
     Active Substance: PIPERACILLIN SODIUM\TAZOBACTAM SODIUM
     Dosage: 1 DF, 3X/DAY
     Route: 042
     Dates: start: 20170208, end: 20170304
  30. DALACINE [Suspect]
     Active Substance: CLINDAMYCIN HYDROCHLORIDE
     Dosage: 600 MG, 4X/DAY
     Dates: start: 20170111, end: 20170208
  31. LOVENOX [Suspect]
     Active Substance: ENOXAPARIN SODIUM
     Dosage: 4000 IU, DAILY
     Route: 058
     Dates: start: 20161223, end: 20170306
  32. OXYNORM [Suspect]
     Active Substance: OXYCODONE HYDROCHLORIDE
     Dosage: 30 MG, DAILY
     Route: 048
  33. GABAPENTIN. [Suspect]
     Active Substance: GABAPENTIN
     Dosage: 300 MG, 3X/DAY
     Route: 048
     Dates: end: 20170113
  34. PARACETAMOL [Suspect]
     Active Substance: ACETAMINOPHEN
     Dosage: 1 G, 4X/DAY
     Route: 048
     Dates: start: 20170203
  35. RIFADINE /00146902/ [Suspect]
     Active Substance: RIFAMPIN SODIUM
     Dosage: 900 MG, 2X/DAY
     Route: 042
     Dates: start: 20170208, end: 20170304
  36. ACUPAN [Suspect]
     Active Substance: NEFOPAM HYDROCHLORIDE
     Dosage: 20 MG, DAILY; IF NEEDED
     Route: 048
  37. LANTUS [Suspect]
     Active Substance: INSULIN GLARGINE
     Dosage: 25 IU, DAILY
     Route: 058
  38. ZYVOXID [Concomitant]
     Active Substance: LINEZOLID
     Dosage: 600 MG, 2X/DAY
     Route: 042
  39. RIFADINE /00146902/ [Suspect]
     Active Substance: RIFAMPIN SODIUM
     Dosage: UNK
     Route: 042
     Dates: start: 20170309

REACTIONS (4)
  - Hyperthermia [Recovered/Resolved]
  - Rash maculo-papular [Recovered/Resolved]
  - Chills [Recovered/Resolved]
  - Pancytopenia [Recovered/Resolved]

NARRATIVE: CASE EVENT DATE: 20170304
